FAERS Safety Report 11636622 (Version 2)
Quarter: 2017Q4

REPORT INFORMATION
  Report Type: Report from Study
  Country: CA (occurrence: CA)
  Receive Date: 20151016
  Receipt Date: 20171023
  Transmission Date: 20180320
  Serious: Yes (Other)
  Sender: FDA-Public Use
  Company Number: CA-SUN PHARMACEUTICAL INDUSTRIES LTD-2015US-104554

PATIENT
  Age: 58 Year
  Sex: Female

DRUGS (5)
  1. TEMOZOLOMIDE. [Suspect]
     Active Substance: TEMOZOLOMIDE
     Indication: GLIOBLASTOMA MULTIFORME
     Dosage: 50 MG/M2 EVERY 21/28 DAYS
     Route: 048
     Dates: start: 201004
  2. AFATINIB [Suspect]
     Active Substance: AFATINIB
     Indication: GLIOBLASTOMA MULTIFORME
     Dosage: 20-40 MG DAILY
     Route: 065
     Dates: start: 201004
  3. AFATINIB [Suspect]
     Active Substance: AFATINIB
     Dosage: 30 MG, DAILY
     Route: 048
  4. TEMOZOLOMIDE. [Suspect]
     Active Substance: TEMOZOLOMIDE
     Dosage: 90 MG, DAILY
     Route: 048
  5. AFATINIB [Suspect]
     Active Substance: AFATINIB
     Dosage: 20 MG, DAILY
     Route: 048

REACTIONS (8)
  - Vomiting [Recovering/Resolving]
  - Weight decreased [Unknown]
  - Nausea [Recovering/Resolving]
  - Diarrhoea [Recovering/Resolving]
  - Fatigue [Unknown]
  - Paronychia [Recovering/Resolving]
  - Rash maculo-papular [Recovering/Resolving]
  - Rash [Recovering/Resolving]
